FAERS Safety Report 6260504-6 (Version None)
Quarter: 2009Q3

REPORT INFORMATION
  Report Type: 
  Country: None (occurrence: None)
  Receive Date: 20090706
  Receipt Date: 20090623
  Transmission Date: 20100115
  Serious: Yes (Death, Life-Threatening, Hospitalization)
  Sender: FDA-Public Use
  Company Number: 2009AP002536

PATIENT
  Age: 90 Year
  Sex: Female

DRUGS (2)
  1. ALENDRONATE SODIUM [Suspect]
     Indication: OSTEOPOROSIS
     Dosage: 70 MG;PO
     Route: 048
     Dates: end: 20090513
  2. ACETYLSALICYLIC ACID [Concomitant]

REACTIONS (2)
  - GASTRIC CANCER [None]
  - OESOPHAGEAL CARCINOMA [None]
